FAERS Safety Report 5052756-5 (Version None)
Quarter: 2006Q3

REPORT INFORMATION
  Report Type: 
  Country: None (occurrence: None)
  Receive Date: 20060717
  Receipt Date: 20060706
  Transmission Date: 20061208
  Serious: Yes (Death)
  Sender: FDA-Public Use
  Company Number: AU-ROCHE-454216

PATIENT
  Age: 66 Year
  Sex: Male

DRUGS (1)
  1. CEFTRIAXONE SODIUM [Suspect]
     Route: 042
     Dates: start: 20060327, end: 20060327

REACTIONS (4)
  - ANAPHYLACTIC REACTION [None]
  - ANGIONEUROTIC OEDEMA [None]
  - CARDIAC ARREST [None]
  - SWOLLEN TONGUE [None]
